FAERS Safety Report 4618605-1 (Version None)
Quarter: 2005Q1

REPORT INFORMATION
  Report Type: 
  Country: None (occurrence: None)
  Receive Date: 20050323
  Receipt Date: 20050307
  Transmission Date: 20050727
  Serious: Yes (Other)
  Sender: FDA-Public Use
  Company Number: L05-BRA-01071-01

PATIENT
  Age: 34 Year
  Sex: Female

DRUGS (3)
  1. PROPRANOLOL [Suspect]
     Indication: SOCIAL PHOBIA
  2. TRANILCIPROMINE [Concomitant]
  3. PAROXETINE HCL [Concomitant]

REACTIONS (2)
  - DRUG ABUSER [None]
  - SELF-MEDICATION [None]
